FAERS Safety Report 19668803 (Version 1)
Quarter: 2021Q3

REPORT INFORMATION
  Report Type: Spontaneous
  Country: FR (occurrence: FR)
  Receive Date: 20210806
  Receipt Date: 20210806
  Transmission Date: 20211014
  Serious: Yes (Other)
  Sender: FDA-Public Use
  Company Number: FR-ORGANON-O2108FRA000348

PATIENT
  Age: 10 Year
  Sex: Female
  Weight: 60 kg

DRUGS (1)
  1. SINGULAIR [Suspect]
     Active Substance: MONTELUKAST SODIUM
     Indication: ASTHMA
     Dosage: 1 DOSAGE FORM, (1 TOTAL) ONCE; 5MG/QD; (FORMULATION REPORTED AS: CRUSCHABLE TABLET)
     Route: 048
     Dates: start: 20190101, end: 20210401

REACTIONS (1)
  - Mixed anxiety and depressive disorder [Recovered/Resolved]

NARRATIVE: CASE EVENT DATE: 2019
